FAERS Safety Report 6573372-X (Version None)
Quarter: 2010Q1

REPORT INFORMATION
  Report Type: 
  Country: None (occurrence: None)
  Receive Date: 20100204
  Receipt Date: 20100204
  Transmission Date: 20100710
  Serious: No
  Sender: FDA-Public Use
  Company Number: None

PATIENT
  Age: 62 Year
  Sex: Female
  Weight: 56.6996 kg

DRUGS (2)
  1. BIAXIN XL [Suspect]
     Indication: SINUSITIS
     Dosage: 500 MG - 2 TABS QD PO
     Route: 048
     Dates: start: 20091226, end: 20091230
  2. BIAXIN XL [Suspect]
     Indication: SINUSITIS
     Dosage: 500 MG - 2 TABS QD PO
     Route: 048
     Dates: start: 20100112, end: 20100115

REACTIONS (11)
  - CONDITION AGGRAVATED [None]
  - DRY EYE [None]
  - ERYTHEMA [None]
  - LIP EXFOLIATION [None]
  - LIP SWELLING [None]
  - NAIL BED INFLAMMATION [None]
  - NEUROPATHY PERIPHERAL [None]
  - PAIN IN EXTREMITY [None]
  - SKIN BURNING SENSATION [None]
  - TENDERNESS [None]
  - VASOCONSTRICTION [None]
